FAERS Safety Report 16697693 (Version 1)
Quarter: 2019Q4

REPORT INFORMATION
  Report Type: Spontaneous
  Country: US (occurrence: US)
  Receive Date: 20190812
  Receipt Date: 20190812
  Transmission Date: 20200122
  Serious: Yes (Other)
  Sender: FDA-Public Use
  Company Number: None

PATIENT
  Age: 36 Year
  Sex: Female

DRUGS (2)
  1. GANIRELIX [Concomitant]
     Active Substance: GANIRELIX
     Dates: start: 20190802
  2. GANIRELIX [Suspect]
     Active Substance: GANIRELIX
     Indication: INFERTILITY
     Route: 058
     Dates: start: 20190802

REACTIONS (1)
  - Nausea [None]

NARRATIVE: CASE EVENT DATE: 20190812
